FAERS Safety Report 8060204 (Version 4)
Quarter: 2012Q4

REPORT INFORMATION
  Report Type: 
  Country: CA (occurrence: CA)
  Receive Date: 20110729
  Receipt Date: 20121030
  Transmission Date: 20130627
  Serious: Yes (Other)
  Sender: FDA-Public Use
  Company Number: PHHY2011CA65554

PATIENT
  Age: 89 Year
  Sex: Female

DRUGS (13)
  1. ACLASTA [Suspect]
     Indication: OSTEOPOROSIS
     Route: 042
     Dates: start: 20080619
  2. ACLASTA [Suspect]
     Route: 042
     Dates: start: 20090703
  3. ACLASTA [Suspect]
     Route: 042
     Dates: start: 20100609
  4. ACLASTA [Suspect]
     Route: 042
     Dates: start: 20110729
  5. ARICEPT [Concomitant]
     Dosage: 10 mg, QD
  6. CALCIUM [Concomitant]
     Dosage: 500 mg, QD
  7. VITAMIN D [Concomitant]
     Dosage: 1000 U, QD
     Route: 048
  8. MULTIVITAMIN [Concomitant]
  9. DIGOXIN [Concomitant]
     Dosage: 0.125 mg, QD
  10. L-THYROXINE [Concomitant]
     Dosage: 0.15 mg, UNK
  11. ALLOPURINOL [Concomitant]
     Dosage: 100 mg, QD
  12. FAZODIN [Concomitant]
     Dosage: 25 mg, BID
  13. FAZODIN [Concomitant]
     Dosage: 100 mg, QHS

REACTIONS (4)
  - Dementia Alzheimer^s type [Unknown]
  - Glomerular filtration rate decreased [Recovered/Resolved]
  - Blood creatinine increased [Recovered/Resolved]
  - Creatinine renal clearance decreased [Recovered/Resolved]
